FAERS Safety Report 12543252 (Version 1)
Quarter: 2016Q3

REPORT INFORMATION
  Report Type: Spontaneous
  Country: US (occurrence: US)
  Receive Date: 20160711
  Receipt Date: 20160711
  Transmission Date: 20161109
  Serious: No
  Sender: FDA-Public Use
  Company Number: US-STRIDES ARCOLAB LIMITED-2016SP007549

PATIENT

DRUGS (1)
  1. IMIQUIMOD. [Suspect]
     Active Substance: IMIQUIMOD
     Indication: PAPULE
     Dosage: 5 %, CREAM
     Route: 061

REACTIONS (6)
  - Mouth ulceration [Recovered/Resolved]
  - Oral mucosa erosion [Recovered/Resolved]
  - Oral disorder [Recovered/Resolved]
  - Erythema [Recovered/Resolved]
  - Lip swelling [Recovered/Resolved]
  - Lip erosion [Recovered/Resolved]
